FAERS Safety Report 21198513 (Version 2)
Quarter: 2022Q4

REPORT INFORMATION
  Report Type: Report from Study
  Country: DZ (occurrence: DZ)
  Receive Date: 20220811
  Receipt Date: 20221006
  Transmission Date: 20230112
  Serious: Yes (Death, Other)
  Sender: FDA-Public Use
  Company Number: DZ-BAYER-2022A111119

PATIENT
  Age: 47 Year
  Sex: Female

DRUGS (1)
  1. VENTAVIS [Suspect]
     Active Substance: ILOPROST
     Indication: Pulmonary arterial hypertension
     Dosage: 4 PER DAY
     Route: 055
     Dates: start: 2019

REACTIONS (1)
  - Death [Fatal]
